FAERS Safety Report 6313647-2 (Version None)
Quarter: 2009Q3

REPORT INFORMATION
  Report Type: 
  Country: None (occurrence: None)
  Receive Date: 20090817
  Receipt Date: 20090817
  Transmission Date: 20100115
  Serious: Yes (Life-Threatening)
  Sender: FDA-Public Use
  Company Number: None

PATIENT
  Age: 77 Year
  Sex: Male
  Weight: 95 kg

DRUGS (1)
  1. FOSINOPRIL SODIUM [Suspect]
     Indication: HYPERTENSION
     Dosage: 10 MG EVERY DAY PO
     Route: 048
     Dates: start: 20090512, end: 20090512

REACTIONS (4)
  - ANGIOEDEMA [None]
  - DYSPHAGIA [None]
  - HYPOAESTHESIA [None]
  - PRURITUS [None]
